FAERS Safety Report 7740377-2 (Version None)
Quarter: 2011Q3

REPORT INFORMATION
  Report Type: 
  Country: None (occurrence: None)
  Receive Date: 20110909
  Receipt Date: 20110829
  Transmission Date: 20111222
  Serious: Yes (Other)
  Sender: FDA-Public Use
  Company Number: FR-UCBSA-034737

PATIENT
  Sex: Female
  Weight: 73 kg

DRUGS (6)
  1. PREDNISONE [Concomitant]
     Indication: RHEUMATOID ARTHRITIS
  2. ALENDRONATE SODIUM [Concomitant]
  3. PANTOPRAZOLE SODIUM [Concomitant]
  4. ARAVA [Concomitant]
     Indication: RHEUMATOID ARTHRITIS
  5. ENBREL [Concomitant]
     Indication: RHEUMATOID ARTHRITIS
     Dates: start: 20100101, end: 20110101
  6. CIMZIA [Suspect]
     Indication: RHEUMATOID ARTHRITIS
     Route: 058
     Dates: start: 20110301, end: 20110501

REACTIONS (2)
  - RASH ERYTHEMATOUS [None]
  - BREAST DISCOMFORT [None]
